FAERS Safety Report 4602892-X (Version None)
Quarter: 2005Q1

REPORT INFORMATION
  Report Type: 
  Country: None (occurrence: None)
  Receive Date: 20050309
  Receipt Date: 20050302
  Transmission Date: 20050727
  Serious: Yes (Life-Threatening)
  Sender: FDA-Public Use
  Company Number: FR-GLAXOSMITHKLINE-B0373429A

PATIENT
  Age: 58 Year
  Sex: Female

DRUGS (5)
  1. DEROXAT [Suspect]
     Indication: DYSTHYMIC DISORDER
     Dosage: 20MG PER DAY
     Route: 048
     Dates: start: 20040527, end: 20050127
  2. THERALENE [Suspect]
     Dosage: 20MG PER DAY
     Route: 048
     Dates: start: 20040527, end: 20050127
  3. LEPONEX [Suspect]
     Dosage: 450MG PER DAY
     Route: 048
     Dates: start: 20040527, end: 20050127
  4. SMECTA [Concomitant]
  5. MOVICOL [Concomitant]

REACTIONS (2)
  - AGRANULOCYTOSIS [None]
  - PYREXIA [None]
